FAERS Safety Report 7671873-4 (Version None)
Quarter: 2011Q3

REPORT INFORMATION
  Report Type: 
  Country: None (occurrence: None)
  Receive Date: 20110809
  Receipt Date: 20110726
  Transmission Date: 20111222
  Serious: No
  Sender: FDA-Public Use
  Company Number: US-B.I. PHARMACEUTICALS,INC./RIDGEFIELD-2011-BP-13853BP

PATIENT
  Sex: Male

DRUGS (18)
  1. XANAX [Concomitant]
     Dosage: 8 MG
     Route: 048
  2. PREDNISONE [Concomitant]
     Dosage: 10 MG
     Route: 048
  3. REMERON [Concomitant]
     Dosage: 45 MG
     Route: 048
  4. ALBUTEROL [Concomitant]
     Indication: CHRONIC OBSTRUCTIVE PULMONARY DISEASE
  5. AMBIEN [Concomitant]
     Dosage: 10 MG
     Route: 048
  6. PHENERGAN VC PLAIN [Concomitant]
     Route: 048
  7. SPIRIVA [Suspect]
     Indication: CHRONIC OBSTRUCTIVE PULMONARY DISEASE
     Dosage: 18 MCG
     Route: 055
     Dates: start: 20070101
  8. PLAQUENIL [Concomitant]
     Indication: OSTEOARTHRITIS
     Dosage: 400 MG
     Route: 048
  9. THEOPHYLLINE [Concomitant]
     Indication: CHRONIC OBSTRUCTIVE PULMONARY DISEASE
     Dosage: 400 MG
     Route: 048
  10. COMBIVENT [Concomitant]
     Indication: CHRONIC OBSTRUCTIVE PULMONARY DISEASE
     Route: 055
  11. MOTRIN [Concomitant]
     Route: 048
  12. LORTAB [Concomitant]
     Indication: OSTEOARTHRITIS
     Route: 048
  13. SYMBICORT [Concomitant]
     Indication: CHRONIC OBSTRUCTIVE PULMONARY DISEASE
     Route: 055
  14. LEVOFLOXACIN [Concomitant]
     Dosage: 500 MG
     Route: 048
  15. LOFIBRA [Concomitant]
     Dosage: 160 MG
     Route: 048
  16. ASPIRIN [Concomitant]
     Dosage: 81 MG
     Route: 048
  17. XOPENEX [Concomitant]
  18. OXYGEN THERAPY [Concomitant]

REACTIONS (1)
  - LUNG DISORDER [None]
